FAERS Safety Report 8040862-2 (Version None)
Quarter: 2012Q1

REPORT INFORMATION
  Report Type: 
  Country: None (occurrence: None)
  Receive Date: 20120112
  Receipt Date: 20120106
  Transmission Date: 20120608
  Serious: Yes (Hospitalization, Other)
  Sender: FDA-Public Use
  Company Number: US-BIOGENIDEC-2011BI043497

PATIENT
  Age: 69 Year
  Sex: Female

DRUGS (2)
  1. AVONEX [Suspect]
     Indication: MULTIPLE SCLEROSIS
     Route: 030
     Dates: start: 20020223
  2. PLAQUENIL [Concomitant]
     Indication: SYSTEMIC LUPUS ERYTHEMATOSUS

REACTIONS (9)
  - HYPERTENSION [None]
  - SPINAL COLUMN INJURY [None]
  - POST PROCEDURAL SWELLING [None]
  - HEADACHE [None]
  - NECK PAIN [None]
  - PROCEDURAL PAIN [None]
  - RENAL FAILURE [None]
  - POST PROCEDURAL HAEMATOMA [None]
  - TENSION HEADACHE [None]
